FAERS Safety Report 25099412 (Version 2)
Quarter: 2025Q2

REPORT INFORMATION
  Report Type: Spontaneous
  Country: US (occurrence: US)
  Receive Date: 20250320
  Receipt Date: 20250423
  Transmission Date: 20250716
  Serious: Yes (Other)
  Sender: BAYER HEALTHCARE LLC
  Company Number: US-BAYER-2025A034356

PATIENT
  Age: 46 Year
  Sex: Male

DRUGS (1)
  1. LOTRIMIN AF ANTIFUNGAL [Suspect]
     Active Substance: MICONAZOLE NITRATE
     Indication: Localised infection
     Route: 061
     Dates: end: 202502

REACTIONS (1)
  - Skin injury [Recovering/Resolving]

NARRATIVE: CASE EVENT DATE: 20250202
